FAERS Safety Report 5163629-1 (Version None)
Quarter: 2006Q4

REPORT INFORMATION
  Report Type: 
  Country: None (occurrence: None)
  Receive Date: 20061124
  Receipt Date: 20061110
  Transmission Date: 20070319
  Serious: Yes (Other)
  Sender: FDA-Public Use
  Company Number: 2006142051

PATIENT
  Age: 52 Year
  Sex: Female
  Weight: 79.3795 kg

DRUGS (10)
  1. CHANTIX [Suspect]
     Indication: SMOKING CESSATION THERAPY
     Dosage: 1 MG (0.5 MG, 2 IN 1 D)
     Dates: start: 20061103
  2. GEODON [Concomitant]
  3. DEPAKOTE [Concomitant]
  4. SEROQUEL [Concomitant]
  5. CLONAZEPAM [Concomitant]
  6. EFFEXOR [Concomitant]
  7. LASIX [Concomitant]
  8. LEVOTHROID [Concomitant]
  9. ZETIA [Concomitant]
  10. SIMVASTATIN [Concomitant]

REACTIONS (3)
  - AMNESIA [None]
  - CONFUSIONAL STATE [None]
  - FEELING ABNORMAL [None]
